FAERS Safety Report 11933286 (Version 2)
Quarter: 2020Q2

REPORT INFORMATION
  Report Type: Spontaneous
  Country: US (occurrence: US)
  Receive Date: 20160121
  Receipt Date: 20200525
  Transmission Date: 20200713
  Serious: No
  Sender: FDA-Public Use
  Company Number: US-TEVA-575622USA

PATIENT
  Sex: Female

DRUGS (19)
  1. ALPHA LIPOIC ACID [Concomitant]
     Active Substance: .ALPHA.-LIPOIC ACID
  2. SPIRIVA [Concomitant]
     Active Substance: TIOTROPIUM BROMIDE MONOHYDRATE
  3. OMEPRAZOLE. [Concomitant]
     Active Substance: OMEPRAZOLE
  4. FUROSEMIDE. [Concomitant]
     Active Substance: FUROSEMIDE
  5. VITAMIN B [Concomitant]
     Active Substance: VITAMIN B
  6. GLIPIZIDE. [Concomitant]
     Active Substance: GLIPIZIDE
  7. ADVAIR HFA [Concomitant]
     Active Substance: FLUTICASONE PROPIONATE\SALMETEROL XINAFOATE
  8. OXYGEN. [Concomitant]
     Active Substance: OXYGEN
  9. METFORMIN [Suspect]
     Active Substance: METFORMIN HYDROCHLORIDE
     Indication: TYPE 2 DIABETES MELLITUS
     Dosage: 2000 MILLIGRAM DAILY;
     Route: 065
     Dates: start: 200707
  10. LISINOPRIL. [Concomitant]
     Active Substance: LISINOPRIL
  11. LORAZEPAM. [Concomitant]
     Active Substance: LORAZEPAM
  12. COENZYME Q10 [Concomitant]
     Active Substance: UBIDECARENONE
  13. ALLOPURINOL. [Concomitant]
     Active Substance: ALLOPURINOL
  14. SIMVASTATIN. [Concomitant]
     Active Substance: SIMVASTATIN
  15. ASPIRIN. [Concomitant]
     Active Substance: ASPIRIN
  16. HUMULIN NOS [Concomitant]
     Active Substance: INSULIN HUMAN
  17. VITAMIN D [Concomitant]
     Active Substance: VITAMIN D NOS
  18. LIDOCAINE. [Concomitant]
     Active Substance: LIDOCAINE
  19. GABAPENTIN. [Concomitant]
     Active Substance: GABAPENTIN

REACTIONS (1)
  - Diarrhoea [Recovering/Resolving]

NARRATIVE: CASE EVENT DATE: 2013
